FAERS Safety Report 17887441 (Version 1)
Quarter: 2020Q2

REPORT INFORMATION
  Report Type: Spontaneous
  Country: DE (occurrence: DE)
  Receive Date: 20200611
  Receipt Date: 20200611
  Transmission Date: 20200714
  Serious: Yes (Other)
  Sender: FDA-Public Use
  Company Number: DE-TAKEDA-2020TUS025842

PATIENT
  Age: 42 Year
  Sex: Female

DRUGS (1)
  1. ENTYVIO [Suspect]
     Active Substance: VEDOLIZUMAB
     Indication: PRODUCT USED FOR UNKNOWN INDICATION
     Dosage: UNK
     Route: 065

REACTIONS (9)
  - Cerebrovascular accident [Unknown]
  - Adverse drug reaction [Unknown]
  - Cardiovascular disorder [Unknown]
  - Drug hypersensitivity [Unknown]
  - Heart rate increased [Unknown]
  - Pruritus [Unknown]
  - Aphasia [Unknown]
  - Feeling abnormal [Unknown]
  - Hypertension [Unknown]
